FAERS Safety Report 8028865-5 (Version None)
Quarter: 2012Q1

REPORT INFORMATION
  Report Type: 
  Country: None (occurrence: None)
  Receive Date: 20120106
  Receipt Date: 20120103
  Transmission Date: 20120608
  Serious: Yes (Other)
  Sender: FDA-Public Use
  Company Number: US-GLAXOSMITHKLINE-A0939283A

PATIENT
  Age: 71 Year
  Sex: Female

DRUGS (5)
  1. VERAPAMIL [Concomitant]
  2. THYROID MEDICATION [Concomitant]
  3. LOSARTAN POTASSIUM [Concomitant]
  4. ADVAIR DISKUS 100/50 [Suspect]
     Indication: EMPHYSEMA
     Dosage: 1PUFF TWICE PER DAY
     Route: 055
     Dates: start: 20050101
  5. ASPIRIN [Concomitant]

REACTIONS (4)
  - CONTUSION [None]
  - SKIN ATROPHY [None]
  - SKIN DISCOLOURATION [None]
  - HYPERAESTHESIA [None]
